FAERS Safety Report 7395157-7 (Version None)
Quarter: 2011Q2

REPORT INFORMATION
  Report Type: 
  Country: None (occurrence: None)
  Receive Date: 20110405
  Receipt Date: 20110324
  Transmission Date: 20111010
  Serious: Yes (Hospitalization, Other)
  Sender: FDA-Public Use
  Company Number: PHHY2011BR24822

PATIENT
  Sex: Female

DRUGS (4)
  1. DIOVAN AMLO FIX [Suspect]
     Indication: HYPERTENSION
     Dosage: 1 DF, QD
     Route: 048
  2. BIPERIDEN HYDROCHLORIDE TAB [Concomitant]
     Indication: TREMOR
     Dosage: 1 DF, QD
     Route: 048
  3. SIFROL [Concomitant]
     Indication: TREMOR
     Dosage: 1 DF, QD
     Route: 048
  4. CIPROFIBRATE [Concomitant]
     Indication: BLOOD TRIGLYCERIDES INCREASED
     Dosage: 1 DF, QD
     Route: 048

REACTIONS (4)
  - HYPERSENSITIVITY [None]
  - POISONING [None]
  - VOMITING [None]
  - TOXICITY TO VARIOUS AGENTS [None]
